FAERS Safety Report 22093813 (Version 1)
Quarter: 2023Q1

REPORT INFORMATION
  Report Type: Spontaneous
  Country: US (occurrence: None)
  Receive Date: 20230314
  Receipt Date: 20230314
  Transmission Date: 20230417
  Serious: No
  Sender: FDA-Public Use
  Company Number: None

PATIENT
  Age: 78 Year
  Sex: Female
  Weight: 70.99 kg

DRUGS (16)
  1. LENALIDOMIDE [Suspect]
     Active Substance: LENALIDOMIDE
     Indication: Myelodysplastic syndrome
     Dosage: FREQUENCY : DAILY;?
     Route: 048
  2. AMIODARONE [Concomitant]
  3. BENZONATATE CALCIUM-VITAMIN D [Concomitant]
  4. ELIQUIS [Concomitant]
  5. FLUOROURACIL [Concomitant]
  6. FUROSEMIDE [Concomitant]
  7. METOPROLOL [Concomitant]
  8. MULTIVITAMIN [Concomitant]
  9. OMEGA-3 ACIDS [Concomitant]
     Active Substance: OMEGA-3 FATTY ACIDS
  10. FISH OIL [Concomitant]
  11. PROLIA [Concomitant]
  12. TRIAMCINOLONE [Concomitant]
  13. TUMERIC [Concomitant]
  14. VITAMIN C [Concomitant]
  15. VITAMIN E [Concomitant]
  16. ZINC [Concomitant]
     Active Substance: ZINC

REACTIONS (3)
  - Oedema peripheral [None]
  - Atrial fibrillation [None]
  - Nasopharyngitis [None]
